FAERS Safety Report 15976624 (Version 1)
Quarter: 2019Q1

REPORT INFORMATION
  Report Type: Spontaneous
  Country: US (occurrence: US)
  Receive Date: 20190218
  Receipt Date: 20190218
  Transmission Date: 20190418
  Serious: Yes (Hospitalization)
  Sender: FDA-Public Use
  Company Number: US-B.I. PHARMACEUTICALS,INC./RIDGEFIELD-2019-BI-006182

PATIENT
  Age: 68 Year
  Sex: Female
  Weight: 76.2 kg

DRUGS (3)
  1. CHANTIX [Concomitant]
     Active Substance: VARENICLINE TARTRATE
     Indication: TOBACCO USER
     Route: 065
     Dates: start: 201711
  2. ADVAIR HFA [Concomitant]
     Active Substance: FLUTICASONE PROPIONATE\SALMETEROL XINAFOATE
     Indication: PRODUCT USED FOR UNKNOWN INDICATION
     Route: 065
  3. SPIRIVA [Suspect]
     Active Substance: TIOTROPIUM BROMIDE MONOHYDRATE
     Indication: BRONCHIAL DISORDER
     Dosage: 1 BREATHING CAPSULE IN A HANDHELD DEAL ONCE DAILY EVERY MORNING
     Route: 055
     Dates: start: 2013

REACTIONS (5)
  - Dyspnoea [Recovered/Resolved]
  - Aspiration [Recovered/Resolved with Sequelae]
  - Hypertension [Not Recovered/Not Resolved]
  - Oxygen therapy [Not Recovered/Not Resolved]
  - Pneumonia [Recovered/Resolved]

NARRATIVE: CASE EVENT DATE: 20180325
